FAERS Safety Report 6253648-6 (Version None)
Quarter: 2009Q3

REPORT INFORMATION
  Report Type: 
  Country: None (occurrence: None)
  Receive Date: 20090701
  Receipt Date: 20090624
  Transmission Date: 20100115
  Serious: Yes (Hospitalization, Other)
  Sender: FDA-Public Use
  Company Number: US-CELGENEUS-163-21880-09061871

PATIENT
  Sex: Female
  Weight: 73.437 kg

DRUGS (14)
  1. REVLIMID [Suspect]
     Indication: LYMPHOMA
     Route: 048
     Dates: start: 20090615, end: 20090620
  2. RITUXIMAB [Suspect]
     Indication: LYMPHOMA
     Route: 051
  3. DOXYCYCLINE [Concomitant]
     Indication: DRUG USE FOR UNKNOWN INDICATION
     Dosage: ONE CAPSULE
     Route: 048
  4. ASPIRIN [Concomitant]
     Indication: DRUG USE FOR UNKNOWN INDICATION
     Route: 048
  5. ALLOPURINOL [Concomitant]
     Indication: DRUG USE FOR UNKNOWN INDICATION
     Route: 048
  6. OXYCODONE [Concomitant]
     Indication: DRUG USE FOR UNKNOWN INDICATION
     Dosage: 1-2 TABLETS
     Route: 048
  7. ACETAMINOPHEN [Concomitant]
     Indication: DRUG USE FOR UNKNOWN INDICATION
     Dosage: 1-2 TABLETS
     Route: 048
  8. LORAZEPAM [Concomitant]
     Dosage: ONE TABLET
     Route: 048
  9. DOCUSATE SODIUM [Concomitant]
     Indication: DRUG USE FOR UNKNOWN INDICATION
     Route: 048
  10. VICODIN [Concomitant]
     Indication: PAIN
     Dosage: 5MG-500MG
     Route: 048
  11. MULTI-VITAMINS [Concomitant]
     Indication: DRUG USE FOR UNKNOWN INDICATION
     Dosage: TWO TABLETS
     Route: 048
  12. VITAMIN E [Concomitant]
     Indication: DRUG USE FOR UNKNOWN INDICATION
     Dosage: 400 UNIT
     Route: 048
  13. VITAMIN B COMPLEX CAP [Concomitant]
     Indication: DRUG USE FOR UNKNOWN INDICATION
     Dosage: ONE TABLET
     Route: 048
  14. CALCIUM [Concomitant]
     Indication: DRUG USE FOR UNKNOWN INDICATION
     Route: 048

REACTIONS (1)
  - PLEURITIC PAIN [None]
